FAERS Safety Report 8462798-5 (Version None)
Quarter: 2012Q2

REPORT INFORMATION
  Report Type: 
  Country: None (occurrence: None)
  Receive Date: 20120625
  Receipt Date: 20120618
  Transmission Date: 20120825
  Serious: Yes (Death)
  Sender: FDA-Public Use
  Company Number: AU-ROCHE-1077718

PATIENT
  Sex: Male

DRUGS (2)
  1. AVASTIN [Suspect]
     Indication: COLORECTAL CANCER METASTATIC
     Dosage: MOST RECENT DOSE ON 15 JUNE 2011
     Route: 042
     Dates: start: 20101230, end: 20110622
  2. XELODA [Concomitant]
     Indication: COLORECTAL CANCER METASTATIC
     Route: 048
     Dates: start: 20101230, end: 20111229

REACTIONS (1)
  - DISEASE PROGRESSION [None]
